FAERS Safety Report 17718790 (Version 1)
Quarter: 2020Q2

REPORT INFORMATION
  Report Type: Report from Study
  Country: EG (occurrence: EG)
  Receive Date: 20200428
  Receipt Date: 20200428
  Transmission Date: 20200714
  Serious: Yes (Hospitalization, Other)
  Sender: FDA-Public Use
  Company Number: NVSC2020EG112754

PATIENT
  Sex: Male

DRUGS (1)
  1. AFINITOR [Suspect]
     Active Substance: EVEROLIMUS
     Indication: BREAST CANCER
     Dosage: 5 MG, BID
     Route: 065
     Dates: start: 20200219

REACTIONS (5)
  - Cholelithiasis [Recovered/Resolved]
  - Drug ineffective [Unknown]
  - Infection [Recovered/Resolved]
  - Toxicity to various agents [Recovered/Resolved]
  - Tumour marker increased [Not Recovered/Not Resolved]
